FAERS Safety Report 25487320 (Version 4)
Quarter: 2025Q4

REPORT INFORMATION
  Report Type: Report from Study
  Country: AE (occurrence: AE)
  Receive Date: 20250627
  Receipt Date: 20251110
  Transmission Date: 20260117
  Serious: Yes (Hospitalization, Other)
  Sender: ROCHE
  Company Number: AE-ROCHE-10000241430

PATIENT
  Age: 3 Year
  Sex: Male

DRUGS (2)
  1. HEMLIBRA [Suspect]
     Active Substance: EMICIZUMAB-KXWH
     Indication: Factor VIII deficiency
     Route: 065
  2. HEMLIBRA [Suspect]
     Active Substance: EMICIZUMAB-KXWH
     Route: 065

REACTIONS (16)
  - Gingival bleeding [Unknown]
  - Oesophagogastric fundoplasty [Unknown]
  - Deafness unilateral [Unknown]
  - Gastrostomy [Unknown]
  - Head lag [Unknown]
  - Hypotonia [Unknown]
  - Muscle spasticity [Unknown]
  - Hyperreflexia [Unknown]
  - Drooling [Unknown]
  - Ill-defined disorder [Unknown]
  - Incoherent [Unknown]
  - Clonus [Unknown]
  - Muscle contracture [Unknown]
  - Saliva altered [Unknown]
  - Epilepsy [Unknown]
  - Incorrect dose administered [Unknown]
